FAERS Safety Report 14994924 (Version 13)
Quarter: 2018Q4

REPORT INFORMATION
  Report Type: Spontaneous
  Country: US (occurrence: US)
  Receive Date: 20180611
  Receipt Date: 20181102
  Transmission Date: 20190204
  Serious: Yes (Hospitalization, Congenital Anomaly, Other)
  Sender: FDA-Public Use
  Company Number: PHEH2018US021897

PATIENT
  Sex: Female

DRUGS (3)
  1. ZOFRAN [Suspect]
     Active Substance: ONDANSETRON HYDROCHLORIDE
     Indication: FOETAL EXPOSURE DURING PREGNANCY
     Dosage: MOTHER^S DOSE: 4 MG, UNK
     Route: 064
  2. ZOFRAN [Suspect]
     Active Substance: ONDANSETRON HYDROCHLORIDE
     Indication: FOETAL EXPOSURE DURING PREGNANCY
     Route: 064
  3. ONDANSETRON [Suspect]
     Active Substance: ONDANSETRON
     Indication: FOETAL EXPOSURE DURING PREGNANCY
     Dosage: MOTHER DOSE: 04 MG, Q8H
     Route: 064

REACTIONS (25)
  - Pulmonary artery stenosis congenital [Unknown]
  - Atrial septal defect [Unknown]
  - Foetal exposure during pregnancy [Unknown]
  - Hyperbilirubinaemia neonatal [Unknown]
  - Hyperkalaemia [Unknown]
  - Dehydration [Unknown]
  - Feeding disorder [Unknown]
  - Hypophagia [Unknown]
  - Viral infection [Unknown]
  - Left-to-right cardiac shunt [Unknown]
  - Jaundice [Unknown]
  - Premature baby [Unknown]
  - Cardiac murmur [Unknown]
  - Failure to thrive [Unknown]
  - Bradycardia neonatal [Unknown]
  - Gastrooesophageal reflux disease [Unknown]
  - Weight gain poor [Unknown]
  - Apnoea [Unknown]
  - Neonatal respiratory distress syndrome [Unknown]
  - Neonatal pneumonia [Unknown]
  - Oliguria [Unknown]
  - Nasal congestion [Unknown]
  - Ophthalmia neonatorum [Unknown]
  - Lethargy [Unknown]
  - Dyspnoea [Unknown]
